FAERS Safety Report 11822262 (Version 3)
Quarter: 2017Q3

REPORT INFORMATION
  Report Type: Spontaneous
  Country: US (occurrence: US)
  Receive Date: 20151210
  Receipt Date: 20170809
  Transmission Date: 20171127
  Serious: Yes (Other)
  Sender: FDA-Public Use
  Company Number: US-JNJFOC-20150209227

PATIENT
  Age: 69 Year
  Sex: Female
  Weight: 63 kg

DRUGS (13)
  1. FISH OIL W/TOCOPHEROL [Concomitant]
     Indication: SUPPLEMENTATION THERAPY
     Route: 048
  2. IMBRUVICA [Suspect]
     Active Substance: IBRUTINIB
     Indication: CHRONIC LYMPHOCYTIC LEUKAEMIA
     Route: 048
     Dates: start: 20140301, end: 20161214
  3. KRILL OIL [Concomitant]
     Active Substance: DIETARY SUPPLEMENT
  4. IMBRUVICA [Suspect]
     Active Substance: IBRUTINIB
     Indication: CHRONIC LYMPHOCYTIC LEUKAEMIA
     Route: 048
     Dates: start: 20151001
  5. IMBRUVICA [Suspect]
     Active Substance: IBRUTINIB
     Indication: CHRONIC LYMPHOCYTIC LEUKAEMIA
     Route: 048
     Dates: start: 20140301, end: 201509
  6. GARLIC. [Concomitant]
     Active Substance: GARLIC
     Indication: SUPPLEMENTATION THERAPY
     Route: 048
  7. COUMADIN [Concomitant]
     Active Substance: WARFARIN SODIUM
     Indication: THROMBOSIS
     Dates: start: 20131203, end: 20141110
  8. LIDOCAINE. [Suspect]
     Active Substance: LIDOCAINE
     Indication: NEURALGIA
     Route: 061
     Dates: start: 20150731, end: 20150804
  9. ORIGANUM SPP. ESSENTIAL OIL [Concomitant]
     Indication: SUPPLEMENTATION THERAPY
     Route: 048
  10. UBIQUINOL [Concomitant]
     Active Substance: UBIQUINOL
     Indication: SUPPLEMENTATION THERAPY
     Route: 048
  11. IMBRUVICA [Suspect]
     Active Substance: IBRUTINIB
     Indication: CHRONIC LYMPHOCYTIC LEUKAEMIA
     Route: 048
  12. IMBRUVICA [Suspect]
     Active Substance: IBRUTINIB
     Indication: CHRONIC LYMPHOCYTIC LEUKAEMIA
     Route: 048
     Dates: start: 20140301
  13. BIFIDOBACTERIUM LACTIS [Concomitant]
     Active Substance: BIFIDOBACTERIUM ANIMALIS LACTIS
     Indication: SUPPLEMENTATION THERAPY
     Route: 048

REACTIONS (20)
  - Decreased appetite [Not Recovered/Not Resolved]
  - Pulmonary thrombosis [Not Recovered/Not Resolved]
  - Pleural effusion [Not Recovered/Not Resolved]
  - Neutropenia [Recovered/Resolved]
  - Otitis externa [Recovered/Resolved]
  - Lymphadenopathy [Not Recovered/Not Resolved]
  - Lung disorder [Recovering/Resolving]
  - Haemorrhoidal haemorrhage [Recovered/Resolved]
  - Vaginal haemorrhage [Not Recovered/Not Resolved]
  - Neuralgia [Not Recovered/Not Resolved]
  - Cough [Not Recovered/Not Resolved]
  - Malaise [Unknown]
  - Feeling abnormal [Not Recovered/Not Resolved]
  - Upper respiratory tract infection [Not Recovered/Not Resolved]
  - Headache [Not Recovered/Not Resolved]
  - Weight decreased [Recovering/Resolving]
  - Pyrexia [Recovered/Resolved]
  - Palpitations [Not Recovered/Not Resolved]
  - Contusion [Recovered/Resolved]
  - Ecchymosis [Recovered/Resolved]

NARRATIVE: CASE EVENT DATE: 201406
